FAERS Safety Report 4521137-2 (Version None)
Quarter: 2004Q4

REPORT INFORMATION
  Report Type: 
  Country: None (occurrence: None)
  Receive Date: 20041203
  Receipt Date: 20041130
  Transmission Date: 20050328
  Serious: Yes (Hospitalization)
  Sender: FDA-Public Use
  Company Number: 210758

PATIENT
  Age: 70 Year
  Sex: Female
  Weight: 63.5 kg

DRUGS (10)
  1. HERCEPTIN (TRASTUZUMAB) PWDR + SOLVENT, INFUSION SOLN, 440MG [Suspect]
     Indication: BREAST CANCER
     Dosage: SEE IMAGE
     Route: 042
     Dates: start: 20041029, end: 20041029
  2. HERCEPTIN (TRASTUZUMAB) PWDR + SOLVENT, INFUSION SOLN, 440MG [Suspect]
     Indication: BREAST CANCER METASTATIC
     Dosage: SEE IMAGE
     Route: 042
     Dates: start: 20041029, end: 20041029
  3. HERCEPTIN (TRASTUZUMAB) PWDR + SOLVENT, INFUSION SOLN, 440MG [Suspect]
     Indication: BREAST CANCER
     Dosage: SEE IMAGE
     Route: 042
     Dates: end: 20041104
  4. HERCEPTIN (TRASTUZUMAB) PWDR + SOLVENT, INFUSION SOLN, 440MG [Suspect]
     Indication: BREAST CANCER METASTATIC
     Dosage: SEE IMAGE
     Route: 042
     Dates: end: 20041104
  5. CYCLOPHOSPHAMIDE [Suspect]
     Indication: BREAST CANCER
     Dosage: 960 MG, INTRAVENOUS
     Route: 042
     Dates: start: 20041029, end: 20041105
  6. CYCLOPHOSPHAMIDE [Suspect]
     Indication: BREAST CANCER METASTATIC
     Dosage: 960 MG, INTRAVENOUS
     Route: 042
     Dates: start: 20041029, end: 20041105
  7. METHOTREXATE [Suspect]
     Indication: BREAST CANCER
     Dosage: 62.5 MG, Q4W, INTRAVENOUS
     Route: 042
     Dates: start: 20041029, end: 20041105
  8. METHOTREXATE [Suspect]
     Indication: BREAST CANCER METASTATIC
     Dosage: 62.5 MG, Q4W, INTRAVENOUS
     Route: 042
     Dates: start: 20041029, end: 20041105
  9. FLUORORACL (FLUOROURACIL) [Suspect]
     Indication: BREAST CANCER
     Dosage: 950 MG, Q4W, INTRAVENOUS
     Route: 042
     Dates: start: 20041029, end: 20041105
  10. FLUORORACL (FLUOROURACIL) [Suspect]
     Indication: BREAST CANCER METASTATIC
     Dosage: 950 MG, Q4W, INTRAVENOUS
     Route: 042
     Dates: start: 20041029, end: 20041105

REACTIONS (4)
  - CARDIAC ARREST [None]
  - LOWER RESPIRATORY TRACT INFECTION [None]
  - NEUTROPENIA [None]
  - WHITE BLOOD CELL COUNT DECREASED [None]
